FAERS Safety Report 6671230-3 (Version None)
Quarter: 2010Q2

REPORT INFORMATION
  Report Type: 
  Country: None (occurrence: None)
  Receive Date: 20100407
  Receipt Date: 20100402
  Transmission Date: 20101027
  Serious: Yes (Hospitalization)
  Sender: FDA-Public Use
  Company Number: KR-ASTRAZENECA-2010SE13643

PATIENT
  Age: 650 Month
  Sex: Female

DRUGS (4)
  1. SEROQUEL [Suspect]
     Indication: SCHIZOPHRENIA
     Route: 048
     Dates: start: 20091007, end: 20091007
  2. SEROQUEL [Suspect]
     Route: 048
     Dates: start: 20091008, end: 20091008
  3. SEROQUEL [Suspect]
     Route: 048
     Dates: start: 20091009, end: 20100326
  4. ATIVAN [Concomitant]
     Indication: INSOMNIA
     Dosage: AS REQUIRED
     Route: 048
     Dates: end: 20100126

REACTIONS (1)
  - SCHIZOPHRENIA [None]
